FAERS Safety Report 8889399 (Version 1)
Quarter: 2012Q4

REPORT INFORMATION
  Report Type: Spontaneous
  Country: US (occurrence: None)
  Receive Date: 20121102
  Receipt Date: 20121102
  Transmission Date: 20130627
  Serious: Yes (Hospitalization)
  Sender: FDA-Public Use
  Company Number: None

PATIENT
  Age: 70 Year
  Sex: Male
  Weight: 99 kg

DRUGS (1)
  1. LISINOPIRIL 20MG [Suspect]
     Route: 048
     Dates: start: 20120101, end: 20121029

REACTIONS (2)
  - Swollen tongue [None]
  - Angioedema [None]
